FAERS Safety Report 24841003 (Version 2)
Quarter: 2025Q1

REPORT INFORMATION
  Report Type: Report from Study
  Country: PL (occurrence: PL)
  Receive Date: 20250114
  Receipt Date: 20250218
  Transmission Date: 20250409
  Serious: Yes (Other)
  Sender: TAKEDA
  Company Number: PL-TAKEDA-2025TUS002686

PATIENT
  Age: 56 Year
  Sex: Male

DRUGS (5)
  1. ANTI-INHIBITOR COAGULANT COMPLEX [Suspect]
     Active Substance: ANTI-INHIBITOR COAGULANT COMPLEX
     Indication: Haemostasis
     Dosage: 5000 INTERNATIONAL UNIT, Q12H
  2. ANTI-INHIBITOR COAGULANT COMPLEX [Suspect]
     Active Substance: ANTI-INHIBITOR COAGULANT COMPLEX
     Indication: Factor VIII deficiency
     Dosage: 5000 INTERNATIONAL UNIT, QD
  3. ANTI-INHIBITOR COAGULANT COMPLEX [Suspect]
     Active Substance: ANTI-INHIBITOR COAGULANT COMPLEX
  4. EPTACOG ALFA [Concomitant]
     Active Substance: COAGULATION FACTOR VIIA RECOMBINANT HUMAN
  5. EPTACOG ALFA [Concomitant]
     Active Substance: COAGULATION FACTOR VIIA RECOMBINANT HUMAN
     Dosage: 90 MICROGRAM/KILOGRAM, Q3HR

REACTIONS (1)
  - Drug ineffective [Unknown]
